FAERS Safety Report 14455152 (Version 1)
Quarter: 2018Q1

REPORT INFORMATION
  Report Type: Spontaneous
  Country: US (occurrence: US)
  Receive Date: 20180129
  Receipt Date: 20180129
  Transmission Date: 20180509
  Serious: No
  Sender: FDA-Public Use
  Company Number: US-BIOGEN-2018BI00514180

PATIENT
  Sex: Female

DRUGS (1)
  1. AVONEX [Suspect]
     Active Substance: INTERFERON BETA-1A
     Indication: MULTIPLE SCLEROSIS
     Route: 030
     Dates: start: 2006, end: 2007

REACTIONS (10)
  - Weight increased [Recovered/Resolved]
  - Anxiety [Recovered/Resolved]
  - Blood cholesterol increased [Not Recovered/Not Resolved]
  - Sleep disorder [Recovered/Resolved]
  - Multiple sclerosis relapse [Recovered/Resolved]
  - Blood pressure increased [Not Recovered/Not Resolved]
  - Neck mass [Recovered/Resolved]
  - Influenza like illness [Recovered/Resolved]
  - Cushingoid [Recovered/Resolved]
  - Hot flush [Recovered/Resolved]

NARRATIVE: CASE EVENT DATE: 2006
